FAERS Safety Report 19212927 (Version 1)
Quarter: 2021Q2

REPORT INFORMATION
  Report Type: Spontaneous
  Country: CH (occurrence: CH)
  Receive Date: 20210504
  Receipt Date: 20210504
  Transmission Date: 20210717
  Serious: No
  Sender: FDA-Public Use
  Company Number: CH-JNJFOC-20210446182

PATIENT

DRUGS (3)
  1. DUROGESIC MATRIX [Suspect]
     Active Substance: FENTANYL
  2. DUROGESIC MATRIX [Suspect]
     Active Substance: FENTANYL
  3. DUROGESIC MATRIX [Suspect]
     Active Substance: FENTANYL
     Indication: PRODUCT USED FOR UNKNOWN INDICATION
     Dosage: UNKNOWN
     Route: 062

REACTIONS (2)
  - Underdose [Unknown]
  - Product adhesion issue [Unknown]
